FAERS Safety Report 9220360 (Version 1)
Quarter: 2013Q1

REPORT INFORMATION
  Report Type: Spontaneous
  Country: US (occurrence: None)
  Receive Date: 20120831
  Receipt Date: 20120831
  Transmission Date: 20140127
  Serious: No
  Sender: FDA-Public Use
  Company Number: 1000030919

PATIENT
  Age: 74 Year
  Sex: Female

DRUGS (3)
  1. DALIRESP (ROFLUMILAST) (500 MICROGRAM, TABLETS) [Suspect]
     Indication: CHRONIC OBSTRUCTIVE PULMONARY DISEASE
     Dosage: (500 MCG, 1 IN 1 D)
     Route: 048
     Dates: start: 20120523
  2. COPD MEDICATIONS (NOS) (COPD MEDICATIONS) [Concomitant]
  3. PRILOSEC (OMEPRAZOLE) (OMEPRAZOLE) [Concomitant]

REACTIONS (7)
  - Nausea [None]
  - Fatigue [None]
  - Abdominal pain upper [None]
  - Hyperhidrosis [None]
  - Diarrhoea [None]
  - Influenza like illness [None]
  - Feeling abnormal [None]
